FAERS Safety Report 4915329-8 (Version None)
Quarter: 2006Q1

REPORT INFORMATION
  Report Type: 
  Country: None (occurrence: None)
  Receive Date: 20060217
  Receipt Date: 20060210
  Transmission Date: 20060701
  Serious: Yes (Hospitalization)
  Sender: FDA-Public Use
  Company Number: FR-GLAXOSMITHKLINE-B0412222A

PATIENT
  Age: 38 Year
  Sex: Male

DRUGS (1)
  1. ZYBAN [Suspect]
     Route: 048
     Dates: start: 20051201, end: 20060101

REACTIONS (3)
  - ANGIONEUROTIC OEDEMA [None]
  - PHARYNGOLARYNGEAL PAIN [None]
  - URTICARIA GENERALISED [None]
